FAERS Safety Report 5009432-4 (Version None)
Quarter: 2006Q2

REPORT INFORMATION
  Report Type: 
  Country: None (occurrence: None)
  Receive Date: 20060524
  Receipt Date: 20060518
  Transmission Date: 20061013
  Serious: Yes (Hospitalization)
  Sender: FDA-Public Use
  Company Number: FR-JNJFOC-20060504089

PATIENT
  Age: 37 Year
  Sex: Female

DRUGS (6)
  1. KETODERM [Suspect]
     Route: 061
     Dates: start: 20030106, end: 20050721
  2. KETODERM [Suspect]
     Indication: DRUG USE FOR UNKNOWN INDICATION
     Route: 061
     Dates: start: 20040625, end: 20050721
  3. TRIZIVIR [Concomitant]
  4. TRIZIVIR [Concomitant]
  5. TRIZIVIR [Concomitant]
     Indication: HIV INFECTION
  6. LOCAL CORTICOSTEROIDS [Concomitant]
     Indication: DRUG USE FOR UNKNOWN INDICATION

REACTIONS (1)
  - APPLICATION SITE PHOTOSENSITIVITY REACTION [None]
